FAERS Safety Report 14004611 (Version 1)
Quarter: 2017Q3

REPORT INFORMATION
  Report Type: Spontaneous
  Country: FR (occurrence: FR)
  Receive Date: 20170922
  Receipt Date: 20170922
  Transmission Date: 20171128
  Serious: Yes (Other)
  Sender: FDA-Public Use
  Company Number: FR-MERCK KGAA-2027282

PATIENT
  Age: 48 Year
  Sex: Female

DRUGS (5)
  1. FORLAX(MACROGOL 4000)(MACROGOL 4000) [Concomitant]
  2. NOVOTHYROX [Suspect]
     Active Substance: LEVOTHYROXINE SODIUM
     Indication: AUTOIMMUNE THYROIDITIS
     Route: 048
     Dates: start: 20170403
  3. LORATADINE. [Concomitant]
     Active Substance: LORATADINE
  4. VENOFER [Concomitant]
     Active Substance: IRON SUCROSE
  5. CARBOSYMAG  /01711301/)(MAGNESIUM OXIDE, SIMETICONE, CHARCO [Concomitant]

REACTIONS (6)
  - Fatigue [Not Recovered/Not Resolved]
  - Menstrual disorder [Not Recovered/Not Resolved]
  - Blood thyroid stimulating hormone increased [Not Recovered/Not Resolved]
  - Constipation [Not Recovered/Not Resolved]
  - Diffuse alopecia [Not Recovered/Not Resolved]
  - Insomnia [Not Recovered/Not Resolved]

NARRATIVE: CASE EVENT DATE: 201704
